FAERS Safety Report 25226545 (Version 1)
Quarter: 2025Q2

REPORT INFORMATION
  Report Type: Spontaneous
  Country: US (occurrence: US)
  Receive Date: 20250422
  Receipt Date: 20250422
  Transmission Date: 20250717
  Serious: Yes (Other)
  Sender: CHATTEM
  Company Number: US-OPELLA-2025OHG010829

PATIENT
  Sex: Female

DRUGS (3)
  1. GOLD BOND ORIGINAL STRENGTH [Suspect]
     Active Substance: MENTHOL
     Indication: Product used for unknown indication
     Route: 065
  2. diphenhydrAMINE (BENADRYL) 25 mg capsule [Concomitant]
     Indication: Sleep disorder
     Route: 048
  3. naproxen sodium (ALEVE) 220 MG tablet [Concomitant]
     Indication: Product used for unknown indication
     Route: 048

REACTIONS (2)
  - Epithelioid mesothelioma [Unknown]
  - Exposure to chemical pollution [Unknown]
